FAERS Safety Report 5460466-5 (Version None)
Quarter: 2007Q3

REPORT INFORMATION
  Report Type: 
  Country: None (occurrence: None)
  Receive Date: 20070919
  Receipt Date: 20070716
  Transmission Date: 20080115
  Serious: Yes (Other)
  Sender: FDA-Public Use
  Company Number: US-ASTRAZENECA-2007UW16522

PATIENT
  Age: 26184 Day
  Sex: Female
  Weight: 84.1 kg

DRUGS (2)
  1. SEROQUEL [Suspect]
     Indication: NERVOUSNESS
     Route: 048
     Dates: start: 20030131, end: 20040215
  2. THORAZINE [Concomitant]

REACTIONS (3)
  - DIABETES MELLITUS [None]
  - PANCREATITIS [None]
  - TARDIVE DYSKINESIA [None]
